FAERS Safety Report 8981285 (Version 2)
Quarter: 2013Q1

REPORT INFORMATION
  Report Type: Report from Study
  Country: US (occurrence: US)
  Receive Date: 20121221
  Receipt Date: 20130111
  Transmission Date: 20140127
  Serious: Yes (Hospitalization)
  Sender: FDA-Public Use
  Company Number: US-US-EMD SERONO, INC.-7183006

PATIENT
  Age: 65 Year
  Sex: Female

DRUGS (1)
  1. REBIF [Suspect]
     Indication: MULTIPLE SCLEROSIS
     Route: 058
     Dates: start: 20061215

REACTIONS (6)
  - Hydrocephalus [Unknown]
  - Cerebral haemorrhage [Unknown]
  - Clostridium difficile infection [Recovering/Resolving]
  - Fall [Unknown]
  - Gait disturbance [Not Recovered/Not Resolved]
  - Gait disturbance [Recovering/Resolving]
